FAERS Safety Report 8383810-8 (Version None)
Quarter: 2012Q2

REPORT INFORMATION
  Report Type: 
  Country: None (occurrence: None)
  Receive Date: 20120524
  Receipt Date: 20120321
  Transmission Date: 20120825
  Serious: Yes (Other)
  Sender: FDA-Public Use
  Company Number: US-ROCHE-1055158

PATIENT
  Sex: Male
  Weight: 85.352 kg

DRUGS (7)
  1. TERAZOSIN HCL [Concomitant]
  2. SIMVASTATIN [Concomitant]
  3. ZELBORAF [Suspect]
     Indication: MALIGNANT MELANOMA STAGE IV
     Route: 048
     Dates: start: 20120210
  4. HYTRIN [Concomitant]
     Route: 048
  5. ASPIRIN [Concomitant]
     Route: 048
  6. IMDUR [Concomitant]
     Route: 048
  7. PREDNISONE [Concomitant]
     Route: 048

REACTIONS (10)
  - RASH [None]
  - CONSTIPATION [None]
  - ALOPECIA [None]
  - FEELING ABNORMAL [None]
  - DECREASED APPETITE [None]
  - MASS [None]
  - ARTHRALGIA [None]
  - PLANTAR FASCIITIS [None]
  - PAIN IN EXTREMITY [None]
  - NASOPHARYNGITIS [None]
